FAERS Safety Report 6377880-6 (Version None)
Quarter: 2009Q3

REPORT INFORMATION
  Report Type: 
  Country: None (occurrence: None)
  Receive Date: 20090925
  Receipt Date: 20090915
  Transmission Date: 20100115
  Serious: Yes (Other)
  Sender: FDA-Public Use
  Company Number: PHHY2009CY02719

PATIENT
  Sex: Male

DRUGS (2)
  1. GLEEVEC [Suspect]
     Dosage: 400 MG, QD
     Dates: start: 20040101
  2. GLEEVEC [Suspect]
     Dosage: 600 MG, QD

REACTIONS (5)
  - ASCITES [None]
  - HAEMATURIA [None]
  - MACULAR DEGENERATION [None]
  - THERAPEUTIC RESPONSE DECREASED [None]
  - VISUAL ACUITY REDUCED [None]
